FAERS Safety Report 16468380 (Version 1)
Quarter: 2019Q3

REPORT INFORMATION
  Report Type: Spontaneous
  Country: US (occurrence: US)
  Receive Date: 20190621
  Receipt Date: 20190621
  Transmission Date: 20191004
  Serious: No
  Sender: FDA-Public Use
  Company Number: None

PATIENT
  Age: 81 Year
  Sex: Female

DRUGS (1)
  1. XIIDRA [Suspect]
     Active Substance: LIFITEGRAST
     Dates: start: 20190601, end: 20190601

REACTIONS (3)
  - Eye irritation [None]
  - Fall [None]
  - Vision blurred [None]

NARRATIVE: CASE EVENT DATE: 20190621
